FAERS Safety Report 9862031 (Version 2)
Quarter: 2014Q1

REPORT INFORMATION
  Report Type: Spontaneous
  Country: IT (occurrence: IT)
  Receive Date: 20140203
  Receipt Date: 20140203
  Transmission Date: 20141002
  Serious: Yes (Other)
  Sender: FDA-Public Use
  Company Number: IT-ELI_LILLY_AND_COMPANY-IT200607004274

PATIENT
  Age: 65 Year
  Sex: Male

DRUGS (5)
  1. GEMCITABINE HYDROCHLORIDE [Suspect]
     Indication: RENAL CANCER METASTATIC
     Dosage: 900 MG/M2, OTHER
     Route: 042
  2. DEXAMETHASONE [Concomitant]
     Indication: PROPHYLAXIS OF NAUSEA AND VOMITING
  3. METHOTREXATE [Concomitant]
     Indication: RENAL CANCER METASTATIC
  4. BLEOMYCIN [Concomitant]
     Indication: RENAL CANCER METASTATIC
  5. VINORELBINE [Concomitant]
     Indication: RENAL CANCER METASTATIC

REACTIONS (1)
  - Skin toxicity [Recovered/Resolved]
